FAERS Safety Report 7805656-9 (Version None)
Quarter: 2011Q4

REPORT INFORMATION
  Report Type: 
  Country: None (occurrence: None)
  Receive Date: 20111010
  Receipt Date: 20110930
  Transmission Date: 20120403
  Serious: Yes (Other)
  Sender: FDA-Public Use
  Company Number: US-BRISTOL-MYERS SQUIBB COMPANY-16120396

PATIENT

DRUGS (3)
  1. ELIGARD [Suspect]
     Indication: PROSTATE CANCER
     Dosage: INJ
  2. COUMADIN [Suspect]
  3. WARFARIN SODIUM [Suspect]

REACTIONS (1)
  - PROSTATE CANCER [None]
